FAERS Safety Report 7476682-7 (Version None)
Quarter: 2011Q2

REPORT INFORMATION
  Report Type: 
  Country: None (occurrence: None)
  Receive Date: 20110512
  Receipt Date: 20110509
  Transmission Date: 20111010
  Serious: Yes (Hospitalization, Other)
  Sender: FDA-Public Use
  Company Number: US-ABBOTT-11P-163-0724441-00

PATIENT
  Sex: Male
  Weight: 192.95 kg

DRUGS (2)
  1. HUMIRA [Suspect]
     Indication: PSORIASIS
     Dates: start: 20080101, end: 20100801
  2. HUMIRA [Suspect]
     Dates: start: 20110507

REACTIONS (2)
  - STAPHYLOCOCCAL INFECTION [None]
  - CYST [None]
